FAERS Safety Report 5154780-0 (Version None)
Quarter: 2006Q4

REPORT INFORMATION
  Report Type: 
  Country: None (occurrence: None)
  Receive Date: 20061115
  Receipt Date: 20061115
  Transmission Date: 20070319
  Serious: Yes (Other)
  Sender: FDA-Public Use
  Company Number: None

PATIENT
  Age: 70 Year
  Sex: Female
  Weight: 62.5964 kg

DRUGS (1)
  1. TAXOTERE [Suspect]
     Indication: LUNG NEOPLASM MALIGNANT
     Dosage: 30 MG  WEEKLY  IV
     Route: 042
     Dates: start: 20061107, end: 20061114

REACTIONS (2)
  - DYSPNOEA [None]
  - FLUSHING [None]
